FAERS Safety Report 7352903-6 (Version None)
Quarter: 2011Q1

REPORT INFORMATION
  Report Type: 
  Country: None (occurrence: None)
  Receive Date: 20110315
  Receipt Date: 20110302
  Transmission Date: 20110831
  Serious: Yes (Other)
  Sender: FDA-Public Use
  Company Number: PHHY2010JP83334

PATIENT
  Age: 80 Year
  Sex: Male
  Weight: 55 kg

DRUGS (4)
  1. LOCHOL [Suspect]
     Indication: HYPERLIPIDAEMIA
  2. ADALAT CC [Concomitant]
     Dosage: 20 MG DAILY
     Route: 048
     Dates: start: 20090521
  3. DEPAS [Concomitant]
     Dosage: 1 MG DAILY
     Route: 048
     Dates: start: 20090101
  4. LOCHOL [Suspect]
     Indication: HYPERCHOLESTEROLAEMIA
     Dosage: 20 MG DAILY
     Route: 048
     Dates: start: 20000901, end: 20101107

REACTIONS (8)
  - C-REACTIVE PROTEIN INCREASED [None]
  - BLOOD CREATINE PHOSPHOKINASE INCREASED [None]
  - WHITE BLOOD CELL COUNT INCREASED [None]
  - RHABDOMYOLYSIS [None]
  - ASPARTATE AMINOTRANSFERASE INCREASED [None]
  - EXCORIATION [None]
  - CONTUSION [None]
  - BLOOD LACTATE DEHYDROGENASE INCREASED [None]
